FAERS Safety Report 9419481 (Version 1)
Quarter: 2013Q3

REPORT INFORMATION
  Report Type: Spontaneous
  Country: FR (occurrence: None)
  Receive Date: 20130723
  Receipt Date: 20130723
  Transmission Date: 20140515
  Serious: Yes (Hospitalization)
  Sender: FDA-Public Use
  Company Number: FK201302628

PATIENT
  Age: 57 Year
  Sex: Female

DRUGS (3)
  1. PACLITAXEL [Suspect]
     Indication: BREAST CANCER METASTATIC
     Route: 042
  2. AVASTATIN (BEVACIZUMAB) [Concomitant]
  3. TRIATEC (RAMIPRIL) [Concomitant]

REACTIONS (1)
  - Interstitial lung disease [None]
